FAERS Safety Report 18553691 (Version 2)
Quarter: 2021Q1

REPORT INFORMATION
  Report Type: Spontaneous
  Country: US (occurrence: US)
  Receive Date: 20201127
  Receipt Date: 20210106
  Transmission Date: 20210419
  Serious: Yes (Other)
  Sender: FDA-Public Use
  Company Number: US-GILEAD-2020-0505720

PATIENT
  Age: 54 Year
  Sex: Female

DRUGS (1)
  1. ATRIPLA [Suspect]
     Active Substance: EFAVIRENZ\EMTRICITABINE\TENOFOVIR DISOPROXIL FUMARATE
     Indication: HIV INFECTION
     Dosage: UNK
     Route: 048
     Dates: start: 20090701, end: 20111106

REACTIONS (12)
  - Chronic kidney disease-mineral and bone disorder [Not Recovered/Not Resolved]
  - Tooth loss [Unknown]
  - Muscular weakness [Not Recovered/Not Resolved]
  - Anaemia [Not Recovered/Not Resolved]
  - Renal failure [Unknown]
  - Glomerular filtration rate increased [Unknown]
  - Bone density decreased [Unknown]
  - Protein total abnormal [Not Recovered/Not Resolved]
  - Protein total increased [Unknown]
  - Chronic kidney disease [Unknown]
  - Blood creatinine increased [Not Recovered/Not Resolved]
  - End stage renal disease [Not Recovered/Not Resolved]

NARRATIVE: CASE EVENT DATE: 20130725
